FAERS Safety Report 9608643 (Version 1)
Quarter: 2013Q4

REPORT INFORMATION
  Report Type: Spontaneous
  Country: FR (occurrence: FR)
  Receive Date: 20131009
  Receipt Date: 20131009
  Transmission Date: 20140711
  Serious: Yes (Hospitalization)
  Sender: FDA-Public Use
  Company Number: FR-BAYER-2013-120754

PATIENT
  Age: 28 Year
  Sex: Female
  Weight: 111 kg

DRUGS (3)
  1. MIRENA [Suspect]
     Indication: CONTRACEPTION
     Dosage: 20 MCG/24HR, CONT
     Route: 015
     Dates: start: 201208
  2. ETONOGESTREL [Concomitant]
     Dosage: UNK
     Dates: start: 20111115, end: 20120817
  3. RAMIPRIL [Concomitant]
     Dosage: UNK
     Dates: end: 201209

REACTIONS (1)
  - Ischaemic stroke [Recovered/Resolved]
